FAERS Safety Report 6729898-9 (Version None)
Quarter: 2010Q2

REPORT INFORMATION
  Report Type: 
  Country: None (occurrence: None)
  Receive Date: 20100512
  Receipt Date: 20100322
  Transmission Date: 20101027
  Serious: Yes (Other)
  Sender: FDA-Public Use
  Company Number: 1000012650

PATIENT
  Age: 55 Year
  Sex: Male

DRUGS (5)
  1. SAVELLA [Suspect]
     Indication: COMPLEX REGIONAL PAIN SYNDROME
     Dosage: 12.5 MG (12.5 MG, 1 IN 1 D), ORAL
     Route: 048
     Dates: start: 20100317, end: 20100317
  2. SAVELLA [Suspect]
     Indication: COMPLEX REGIONAL PAIN SYNDROME
     Dosage: 25 MG (12.5 MG, 2 IN 1 D), ORAL
     Route: 048
     Dates: start: 20100318, end: 20100319
  3. DURAGESIC-100 [Concomitant]
  4. DILAUDID [Concomitant]
  5. ROXICODONE [Concomitant]

REACTIONS (2)
  - NIGHT SWEATS [None]
  - SUICIDAL IDEATION [None]
